FAERS Safety Report 18496644 (Version 1)
Quarter: 2020Q4

REPORT INFORMATION
  Report Type: Spontaneous
  Country: GB (occurrence: GB)
  Receive Date: 20201112
  Receipt Date: 20201112
  Transmission Date: 20210114
  Serious: Yes (Other)
  Sender: FDA-Public Use
  Company Number: GB-TEVA-2020-GB-1848798

PATIENT
  Age: 7 Year
  Sex: Female

DRUGS (2)
  1. CISPLATIN. [Suspect]
     Active Substance: CISPLATIN
     Indication: PANCREATOBLASTOMA
     Dosage: TOTAL CUMULATIVE DOSE WAS 540MG/M2 IN 6 CYCLES
     Route: 065
  2. DOXORUBICIN [Suspect]
     Active Substance: DOXORUBICIN
     Indication: PANCREATOBLASTOMA
     Dosage: TOTAL CUMULATIVE DOSE WAS 330MG/M2 IN 6 CYCLES
     Route: 065

REACTIONS (2)
  - Renal tubular dysfunction [Unknown]
  - Myelosuppression [Unknown]
